FAERS Safety Report 24629432 (Version 2)
Quarter: 2024Q4

REPORT INFORMATION
  Report Type: Spontaneous
  Country: CN (occurrence: CN)
  Receive Date: 20241118
  Receipt Date: 20241120
  Transmission Date: 20250115
  Serious: Yes (Other)
  Sender: NOVO NORDISK
  Company Number: CN-NOVOPROD-1317751

PATIENT

DRUGS (1)
  1. TRESIBA [Suspect]
     Active Substance: INSULIN DEGLUDEC
     Indication: Product used for unknown indication
     Dosage: 20 UNITS
     Dates: start: 20241002, end: 20241002

REACTIONS (3)
  - Altered state of consciousness [Unknown]
  - Prescription drug used without a prescription [Unknown]
  - Dizziness [Unknown]

NARRATIVE: CASE EVENT DATE: 20241002
